FAERS Safety Report 25302395 (Version 3)
Quarter: 2025Q2

REPORT INFORMATION
  Report Type: Spontaneous
  Country: CN (occurrence: CN)
  Receive Date: 20250512
  Receipt Date: 20250613
  Transmission Date: 20250717
  Serious: Yes (Death, Other)
  Sender: AMGEN
  Company Number: CN-AMGEN-CHNSP2025086057

PATIENT
  Age: 58 Year
  Sex: Female

DRUGS (2)
  1. BLINATUMOMAB [Suspect]
     Active Substance: BLINATUMOMAB
     Indication: B-cell type acute leukaemia
     Route: 065
  2. DEXAMETHASONE [Concomitant]
     Active Substance: DEXAMETHASONE

REACTIONS (4)
  - B-cell type acute leukaemia [Fatal]
  - Cerebral haemorrhage [Fatal]
  - Myelosuppression [Not Recovered/Not Resolved]
  - Cytokine release syndrome [Recovered/Resolved]
